FAERS Safety Report 12191962 (Version 8)
Quarter: 2016Q4

REPORT INFORMATION
  Report Type: Spontaneous
  Country: FR (occurrence: FR)
  Receive Date: 20160318
  Receipt Date: 20161230
  Transmission Date: 20170207
  Serious: Yes (Other)
  Sender: FDA-Public Use
  Company Number: FR-009507513-1603FRA005339

PATIENT
  Age: 21 Year
  Sex: Female
  Weight: 45 kg

DRUGS (2)
  1. NEXPLANON [Suspect]
     Active Substance: ETONOGESTREL
     Dosage: IN THE RIGHT ARM
     Route: 059
     Dates: start: 2012, end: 2014
  2. NEXPLANON [Suspect]
     Active Substance: ETONOGESTREL
     Dosage: IN THE LEFT ARM
     Route: 059
     Dates: start: 20140930, end: 20161019

REACTIONS (10)
  - Device difficult to use [Recovered/Resolved]
  - Fatigue [Unknown]
  - Complication associated with device [Recovered/Resolved]
  - Surgery [Recovered/Resolved]
  - Device deployment issue [Recovered/Resolved]
  - Aggression [Not Recovered/Not Resolved]
  - Mood altered [Unknown]
  - Loss of libido [Not Recovered/Not Resolved]
  - Weight decreased [Unknown]
  - Somnolence [Unknown]

NARRATIVE: CASE EVENT DATE: 2012
